FAERS Safety Report 6031459-4 (Version None)
Quarter: 2009Q1

REPORT INFORMATION
  Report Type: 
  Country: None (occurrence: None)
  Receive Date: 20090108
  Receipt Date: 20081229
  Transmission Date: 20090719
  Serious: Yes (Other)
  Sender: FDA-Public Use
  Company Number: GB-PFIZER INC-2005169923

PATIENT

DRUGS (4)
  1. SUNITINIB MALATE [Suspect]
     Indication: METASTATIC RENAL CELL CARCINOMA
     Dosage: 25 MG, 1X/DAY
     Route: 048
     Dates: start: 20050714, end: 20051207
  2. AMLODIPINE BESILATE [Suspect]
     Route: 048
     Dates: start: 20050904
  3. BENDROFLUMETHIAZIDE [Concomitant]
     Route: 048
     Dates: start: 20050902
  4. LANSOPRAZOLE [Concomitant]
     Route: 048
     Dates: start: 20050920

REACTIONS (1)
  - ATRIAL FIBRILLATION [None]
